FAERS Safety Report 24128484 (Version 2)
Quarter: 2024Q3

REPORT INFORMATION
  Report Type: Spontaneous
  Country: CH (occurrence: CH)
  Receive Date: 20240723
  Receipt Date: 20240828
  Transmission Date: 20241016
  Serious: Yes (Death, Other)
  Sender: REGENERON
  Company Number: CH-BAYER-2024A105265

PATIENT
  Age: 86 Year
  Sex: Female

DRUGS (2)
  1. EYLEA [Suspect]
     Active Substance: AFLIBERCEPT
     Indication: Product used for unknown indication
     Dosage: TREATED IN RIGHT EYE, SOLUTION FOR INJECTION, 40MG/ML
     Dates: start: 20190522, end: 20190522
  2. EYLEA [Suspect]
     Active Substance: AFLIBERCEPT
     Dosage: TREATED IN RIGHT EYE, SOLUTION FOR INJECTION, 40MG/ML
     Dates: start: 20210825, end: 20210825

REACTIONS (1)
  - Death [Fatal]
